FAERS Safety Report 13033970 (Version 1)
Quarter: 2016Q4

REPORT INFORMATION
  Report Type: Spontaneous
  Country: US (occurrence: US)
  Receive Date: 20161215
  Receipt Date: 20161215
  Transmission Date: 20170207
  Serious: No
  Sender: FDA-Public Use
  Company Number: None

PATIENT
  Sex: Female

DRUGS (1)
  1. HUMIRA [Suspect]
     Active Substance: ADALIMUMAB
     Indication: CROHN^S DISEASE
     Route: 058
     Dates: start: 20160705

REACTIONS (8)
  - Fatigue [None]
  - Contusion [None]
  - Dehydration [None]
  - Muscle spasms [None]
  - Vomiting [None]
  - Cardiac flutter [None]
  - Asthenia [None]
  - Blood potassium decreased [None]
